FAERS Safety Report 10629224 (Version 1)
Quarter: 2014Q4

REPORT INFORMATION
  Report Type: Spontaneous
  Country: US (occurrence: None)
  Receive Date: 20141203
  Receipt Date: 20141203
  Transmission Date: 20150529
  Serious: No
  Sender: FDA-Public Use
  Company Number: None

PATIENT

DRUGS (1)
  1. AMPHETAMINE SALTS 30 MG AUROBINDO [Suspect]
     Active Substance: AMPHETAMINE ASPARTATE\AMPHETAMINE SULFATE\DEXTROAMPHETAMINE SACCHARATE\DEXTROAMPHETAMINE SULFATE
     Indication: ATTENTION DEFICIT/HYPERACTIVITY DISORDER
     Dosage: 3 TABLETS  ONCE DAILY TAKEN BY MOUTH
     Route: 048
     Dates: start: 20141114, end: 20141201

REACTIONS (6)
  - Nausea [None]
  - Headache [None]
  - Condition aggravated [None]
  - Product substitution issue [None]
  - Attention deficit/hyperactivity disorder [None]
  - Product quality issue [None]

NARRATIVE: CASE EVENT DATE: 20141114
